FAERS Safety Report 9384830 (Version 2)
Quarter: 2013Q4

REPORT INFORMATION
  Report Type: Spontaneous
  Country: US (occurrence: US)
  Receive Date: 20130705
  Receipt Date: 20131218
  Transmission Date: 20140711
  Serious: Yes (Hospitalization)
  Sender: FDA-Public Use
  Company Number: US-B.I. PHARMACEUTICALS,INC./RIDGEFIELD-2013-BI-18731BP

PATIENT
  Sex: Male
  Weight: 77.11 kg

DRUGS (11)
  1. PRADAXA [Suspect]
     Indication: ANTICOAGULANT THERAPY
     Dosage: 150 MG
     Dates: start: 20110831, end: 201205
  2. PRADAXA [Suspect]
     Indication: ATRIAL FIBRILLATION
  3. ASPIRIN [Concomitant]
  4. TYLENOL [Concomitant]
  5. METOPROLOL [Concomitant]
  6. DETROL [Concomitant]
  7. LISINOPRIL [Concomitant]
     Dates: start: 2011, end: 2012
  8. GABAPENTIN [Concomitant]
  9. HYDROCHLOROTHIAZIDE [Concomitant]
     Dates: start: 2011, end: 2012
  10. OMEPRAZOLE [Concomitant]
     Dates: start: 2010, end: 2012
  11. TRAMADOL [Concomitant]
     Dates: start: 2011, end: 201207

REACTIONS (3)
  - Gastrointestinal haemorrhage [Unknown]
  - Anaemia [Unknown]
  - Haematuria [Unknown]
